FAERS Safety Report 4760085-X (Version None)
Quarter: 2005Q3

REPORT INFORMATION
  Report Type: 
  Country: None (occurrence: None)
  Receive Date: 20050902
  Receipt Date: 20050216
  Transmission Date: 20060218
  Serious: No
  Sender: FDA-Public Use
  Company Number: US-GLAXOSMITHKLINE-A0545981A

PATIENT
  Age: 61 Year
  Sex: Male
  Weight: 102.3 kg

DRUGS (4)
  1. REQUIP [Suspect]
     Indication: DRUG USE FOR UNKNOWN INDICATION
     Dosage: 75MG THREE TIMES PER DAY
     Route: 048
  2. LEVITRA [Suspect]
     Indication: ERECTILE DYSFUNCTION
     Dosage: 20MG AS REQUIRED
     Route: 048
  3. LISINOPRIL [Concomitant]
     Dosage: 40MG UNKNOWN
     Route: 048
  4. SINEMET [Concomitant]
     Indication: PARKINSON'S DISEASE
     Route: 048

REACTIONS (2)
  - BLOOD PRESSURE DECREASED [None]
  - ERECTILE DYSFUNCTION [None]
